FAERS Safety Report 17371620 (Version 1)
Quarter: 2020Q1

REPORT INFORMATION
  Report Type: Spontaneous
  Country: MD (occurrence: MD)
  Receive Date: 20200205
  Receipt Date: 20200205
  Transmission Date: 20200409
  Serious: Yes (Death, Life-Threatening, Hospitalization, Other)
  Sender: FDA-Public Use
  Company Number: MD-BAXTER-2020BAX002450

PATIENT
  Age: 46 Year
  Sex: Female

DRUGS (2)
  1. DOXIL [Suspect]
     Active Substance: DOXORUBICIN HYDROCHLORIDE
     Indication: GLIOBLASTOMA
     Dosage: 1 MG/10 ML (1 GM, 3 CYCLICAL)
     Route: 042
  2. DOXIL [Suspect]
     Active Substance: DOXORUBICIN HYDROCHLORIDE
     Indication: GLIOBLASTOMA

REACTIONS (5)
  - Hypothermia [Fatal]
  - Cerebral haemorrhage [Fatal]
  - Central nervous system necrosis [Fatal]
  - Coma [Fatal]
  - Blood pressure decreased [Fatal]
